FAERS Safety Report 10217594 (Version 2)
Quarter: 2014Q2

REPORT INFORMATION
  Report Type: Spontaneous
  Country: BR (occurrence: BR)
  Receive Date: 20140604
  Receipt Date: 20140605
  Transmission Date: 20141212
  Serious: Yes (Life-Threatening, Hospitalization)
  Sender: FDA-Public Use
  Company Number: BR-B.I. PHARMACEUTICALS,INC./RIDGEFIELD-2014-BI-24798BR

PATIENT
  Age: 73 Year
  Sex: Male

DRUGS (4)
  1. PRADAXA [Suspect]
     Indication: CEREBROVASCULAR ACCIDENT PROPHYLAXIS
     Dosage: 220 MG
     Route: 048
     Dates: start: 201404, end: 201405
  2. PRADAXA [Suspect]
     Indication: ATRIAL FIBRILLATION
  3. BENICAR [Concomitant]
     Indication: HYPERTENSION
     Dosage: 40 MG
     Route: 048
  4. ATORVASTATINA [Concomitant]
     Indication: DYSLIPIDAEMIA
     Dosage: 10 MG
     Route: 048

REACTIONS (2)
  - Haemorrhagic stroke [Recovered/Resolved]
  - Syncope [Recovered/Resolved]
